FAERS Safety Report 15883030 (Version 3)
Quarter: 2019Q1

REPORT INFORMATION
  Report Type: Spontaneous
  Country: JP (occurrence: JP)
  Receive Date: 20190129
  Receipt Date: 20190227
  Transmission Date: 20190417
  Serious: Yes (Other)
  Sender: FDA-Public Use
  Company Number: JP-SAKK-2019SA020622AA

PATIENT
  Age: 8 Decade
  Sex: Male

DRUGS (3)
  1. FLUOROURACIL. [Suspect]
     Active Substance: FLUOROURACIL
     Indication: HEAD AND NECK CANCER
     Route: 065
  2. DOCETAXEL. [Suspect]
     Active Substance: DOCETAXEL
     Indication: HEAD AND NECK CANCER
     Route: 041
  3. CISPLATIN. [Suspect]
     Active Substance: CISPLATIN
     Indication: HEAD AND NECK CANCER
     Route: 065

REACTIONS (7)
  - Infectious pleural effusion [Recovered/Resolved]
  - Dyspnoea [Recovering/Resolving]
  - Vomiting [Unknown]
  - Impaired gastric emptying [Recovered/Resolved]
  - Gastropleural fistula [Recovered/Resolved]
  - Inflammation [Unknown]
  - Gastric ulcer perforation [Recovered/Resolved]
